FAERS Safety Report 15073496 (Version 1)
Quarter: 2018Q2

REPORT INFORMATION
  Report Type: Spontaneous
  Country: SK (occurrence: SK)
  Receive Date: 20180627
  Receipt Date: 20180627
  Transmission Date: 20180711
  Serious: Yes (Hospitalization)
  Sender: FDA-Public Use
  Company Number: PHHY2018SK029719

PATIENT
  Age: 65 Year
  Sex: Male

DRUGS (1)
  1. TEGRETOL [Suspect]
     Active Substance: CARBAMAZEPINE
     Indication: POST HERPETIC NEURALGIA
     Dosage: 100 MG, Q12H
     Route: 048
     Dates: start: 20180124, end: 20180227

REACTIONS (4)
  - Erythema [Recovered/Resolved]
  - Face oedema [Recovered/Resolved]
  - Pruritus [Recovered/Resolved]
  - Rash maculo-papular [Recovered/Resolved]

NARRATIVE: CASE EVENT DATE: 20180222
